FAERS Safety Report 6662507-6 (Version None)
Quarter: 2010Q1

REPORT INFORMATION
  Report Type: 
  Country: None (occurrence: None)
  Receive Date: 20100329
  Receipt Date: 20100316
  Transmission Date: 20100710
  Serious: Yes (Other)
  Sender: FDA-Public Use
  Company Number: RB-02839-2010

PATIENT
  Age: 47 Year
  Sex: Female

DRUGS (1)
  1. SUBOXONE [Suspect]
     Indication: DRUG USE FOR UNKNOWN INDICATION

REACTIONS (5)
  - ABDOMINAL PAIN UPPER [None]
  - INSOMNIA [None]
  - SUICIDAL IDEATION [None]
  - UNEVALUABLE EVENT [None]
  - VIOLENCE-RELATED SYMPTOM [None]
